FAERS Safety Report 7251509-7 (Version None)
Quarter: 2011Q1

REPORT INFORMATION
  Report Type: 
  Country: None (occurrence: None)
  Receive Date: 20110128
  Receipt Date: 20110120
  Transmission Date: 20110831
  Serious: Yes (Other)
  Sender: FDA-Public Use
  Company Number: US-GENENTECH-311330

PATIENT
  Sex: Female
  Weight: 136.5 kg

DRUGS (1)
  1. XOLAIR [Suspect]
     Indication: PRODUCT USED FOR UNKNOWN INDICATION
     Dosage: 300 MG, Q2W
     Route: 058
     Dates: start: 20100304, end: 20101209

REACTIONS (2)
  - HAEMORRHAGE [None]
  - MUSCLE SPASMS [None]
